FAERS Safety Report 7082181-7 (Version None)
Quarter: 2010Q4

REPORT INFORMATION
  Report Type: 
  Country: None (occurrence: None)
  Receive Date: 20101103
  Receipt Date: 20101020
  Transmission Date: 20110411
  Serious: Yes (Hospitalization)
  Sender: FDA-Public Use
  Company Number: US-AMGEN-USASP2010001585

PATIENT

DRUGS (1)
  1. PROCRIT [Suspect]
     Dosage: UNK
     Dates: start: 20080101

REACTIONS (1)
  - HAEMORRHAGE [None]
